FAERS Safety Report 23253073 (Version 2)
Quarter: 2023Q4

REPORT INFORMATION
  Report Type: Spontaneous
  Country: RO (occurrence: RO)
  Receive Date: 20231201
  Receipt Date: 20231228
  Transmission Date: 20240109
  Serious: Yes (Other)
  Sender: FDA-Public Use
  Company Number: RO-ORPHANEU-2023007840

PATIENT
  Age: 4 Year
  Sex: Female

DRUGS (7)
  1. IRINOTECAN [Suspect]
     Active Substance: IRINOTECAN
     Indication: Neuroblastoma
     Dosage: 50 MILLIGRAM/SQ. METER (DAY 1-5 (EVERY 21 DAYS) )
     Route: 065
     Dates: start: 202310
  2. DINUTUXIMAB BETA [Suspect]
     Active Substance: DINUTUXIMAB BETA
     Indication: Neuroblastoma
     Dosage: 10 MILLIGRAM/SQ. METER, ONCE A DAY (DAY 2-6 (50MG/M2/CYCLE), EVERY 21 DAYS )
     Route: 065
     Dates: start: 202310
  3. MORPHINE [Suspect]
     Active Substance: MORPHINE
     Indication: Premedication
     Dosage: 0.03 MILLIGRAM/KILOGRAM, EVERY HOUR (2 HOURS BEFORE WITH DINUTIXIMAB BETA INFUSIONS )
     Route: 065
     Dates: start: 202310
  4. TEMOZOLOMIDE [Suspect]
     Active Substance: TEMOZOLOMIDE
     Indication: Neuroblastoma
     Dosage: 100 MILLIGRAM/SQ. METER, DAILY ((1-5 DAYS) EVERY 21 DAYS )
     Route: 065
     Dates: start: 202310
  5. GABAPENTIN [Concomitant]
     Active Substance: GABAPENTIN
     Indication: Premedication
     Dosage: 10 MILLIGRAM/KILOGRAM (DAY1 TO DAY3 )
     Route: 065
     Dates: start: 202310
  6. ACETAMINOPHEN [Concomitant]
     Active Substance: ACETAMINOPHEN
     Indication: Premedication
     Dosage: 10 MILLIGRAM/KILOGRAM, FOUR TIMES/DAY
     Route: 065
     Dates: start: 202310
  7. DIPHENHYDRAMINE [Concomitant]
     Active Substance: DIPHENHYDRAMINE
     Indication: Premedication
     Dosage: 1 MILLIGRAM/KILOGRAM (1MG/KG/DOSE FOR 3 TO 4 TIMES A DAY )
     Route: 065
     Dates: start: 202310

REACTIONS (13)
  - Oxygen saturation decreased [Recovered/Resolved]
  - Urinary retention [Recovered/Resolved]
  - Somnolence [Not Recovered/Not Resolved]
  - Miosis [Recovered/Resolved]
  - Tachycardia [Recovered/Resolved]
  - Decreased appetite [Unknown]
  - Urine output decreased [Unknown]
  - Nausea [Unknown]
  - Diarrhoea [Unknown]
  - Vomiting [Unknown]
  - Mydriasis [Unknown]
  - Blood pressure decreased [Not Recovered/Not Resolved]
  - Off label use [Recovered/Resolved]

NARRATIVE: CASE EVENT DATE: 20230101
